FAERS Safety Report 4871778-8 (Version None)
Quarter: 2006Q1

REPORT INFORMATION
  Report Type: 
  Country: None (occurrence: None)
  Receive Date: 20060104
  Receipt Date: 20051229
  Transmission Date: 20060701
  Serious: Yes (Hospitalization)
  Sender: FDA-Public Use
  Company Number: 2005UW19509

PATIENT
  Sex: Female

DRUGS (1)
  1. ZESTRIL [Suspect]
     Route: 048

REACTIONS (3)
  - ANGIONEUROTIC OEDEMA [None]
  - BLOOD PRESSURE INCREASED [None]
  - HYPOAESTHESIA [None]
